FAERS Safety Report 21231071 (Version 3)
Quarter: 2022Q3

REPORT INFORMATION
  Report Type: Spontaneous
  Country: US (occurrence: US)
  Receive Date: 20220819
  Receipt Date: 20220906
  Transmission Date: 20221027
  Serious: Yes (Other)
  Sender: FDA-Public Use
  Company Number: US-JNJFOC-20220820814

PATIENT
  Age: 69 Year
  Sex: Female

DRUGS (1)
  1. TYLENOL REGULAR STRENGTH [Suspect]
     Active Substance: ACETAMINOPHEN
     Indication: Product used for unknown indication
     Dosage: 1 GELCAPS I JUST USED ONCE
     Route: 048
     Dates: start: 20220802

REACTIONS (2)
  - Foreign body in throat [Recovered/Resolved]
  - Product size issue [Unknown]

NARRATIVE: CASE EVENT DATE: 20220802
